FAERS Safety Report 9745576 (Version 1)
Quarter: 2013Q4

REPORT INFORMATION
  Report Type: Spontaneous
  Country: US (occurrence: None)
  Receive Date: 20131205
  Receipt Date: 20131205
  Transmission Date: 20140711
  Serious: Yes (Hospitalization)
  Sender: FDA-Public Use
  Company Number: None

PATIENT
  Age: 82 Year
  Sex: Male

DRUGS (9)
  1. ELIQUIS [Suspect]
     Indication: ATRIAL FIBRILLATION
     Route: 048
  2. SPIRONOLACTONE 25 MG [Concomitant]
  3. GLIPIZIDE 5 MG [Concomitant]
  4. LEVOTHYROXINE [Concomitant]
  5. XANAX [Concomitant]
  6. LIPITOR 10MG [Concomitant]
  7. LASIX 40MG [Concomitant]
  8. FLOMAX [Concomitant]
  9. COREG [Concomitant]

REACTIONS (2)
  - Epistaxis [None]
  - Haematuria [None]
